FAERS Safety Report 5382781-6 (Version None)
Quarter: 2007Q3

REPORT INFORMATION
  Report Type: 
  Country: None (occurrence: None)
  Receive Date: 20070705
  Receipt Date: 20070622
  Transmission Date: 20080115
  Serious: Yes (Other)
  Sender: FDA-Public Use
  Company Number: 2007US001463

PATIENT
  Sex: Female

DRUGS (3)
  1. PROGRAF [Suspect]
     Indication: OFF LABEL USE
     Dosage: SEE IMAGE
     Route: 048
     Dates: start: 20061101
  2. PROGRAF [Suspect]
     Indication: OFF LABEL USE
     Dosage: SEE IMAGE
     Route: 048
     Dates: start: 20070101
  3. METHYLPREDNISOLONE [Concomitant]

REACTIONS (5)
  - ABDOMINAL PAIN LOWER [None]
  - BACK PAIN [None]
  - FLUID RETENTION [None]
  - MIGRAINE [None]
  - VOMITING [None]
